FAERS Safety Report 9057460 (Version 1)
Quarter: 2013Q1

REPORT INFORMATION
  Report Type: Spontaneous
  Country: US (occurrence: US)
  Receive Date: 20130204
  Receipt Date: 20130204
  Transmission Date: 20140127
  Serious: Yes (Other)
  Sender: FDA-Public Use
  Company Number: US-ASTRAZENECA-2013SE06610

PATIENT
  Age: 47 Year
  Sex: Female

DRUGS (4)
  1. NEXIUM [Suspect]
     Indication: DYSPEPSIA
     Route: 048
  2. OMEPRAZOLE [Suspect]
     Indication: DYSPEPSIA
     Route: 048
  3. OXYCODONE [Concomitant]
     Indication: PAIN
  4. WARFARIN [Concomitant]
     Indication: ANTICOAGULANT THERAPY

REACTIONS (4)
  - Cerebrovascular accident [Unknown]
  - Chest pain [Unknown]
  - Drug ineffective [Unknown]
  - Intentional drug misuse [Unknown]
